FAERS Safety Report 7980412 (Version 5)
Quarter: 2012Q4

REPORT INFORMATION
  Report Type: 
  Country: IE (occurrence: IE)
  Receive Date: 20110608
  Receipt Date: 20121231
  Transmission Date: 20130627
  Serious: Yes (Death, Hospitalization, Other)
  Sender: FDA-Public Use
  Company Number: PHFR2010IE05757

PATIENT
  Age: 49 Year
  Sex: Female

DRUGS (6)
  1. CLOZARIL [Suspect]
     Indication: SCHIZOPHRENIA
     Dosage: 250 mg, BID
     Route: 048
     Dates: start: 20001204
  2. INDERAL ^IMPERIAL CHEMICAL INDUSTRIES^ [Concomitant]
     Dosage: 10 mg, BID
     Route: 048
  3. DIAZEPAM [Concomitant]
     Dosage: 5 m, BID
     Route: 048
  4. SULPIRIDE [Concomitant]
     Indication: PSYCHOTIC DISORDER
     Dosage: 100 mg, TID
     Route: 048
  5. TRIFLUOPERAZINE [Concomitant]
     Dosage: 5 mg, BID
  6. QUETIAPIN [Concomitant]
     Dosage: 200 mg, BID

REACTIONS (19)
  - Breast cancer metastatic [Fatal]
  - Metastases to lung [Fatal]
  - Metastases to liver [Fatal]
  - Metastases to bone [Fatal]
  - Dehydration [Unknown]
  - Confusional state [Unknown]
  - General physical health deterioration [Unknown]
  - Immunodeficiency [Unknown]
  - Muscle twitching [Unknown]
  - Hypokinesia [Unknown]
  - Hypertonia [Unknown]
  - Lymphoedema [Not Recovered/Not Resolved]
  - Oedema peripheral [Unknown]
  - Psychotic disorder [Unknown]
  - Extrapyramidal disorder [Unknown]
  - Convulsion [Unknown]
  - Muscle rigidity [Unknown]
  - Musculoskeletal stiffness [Unknown]
  - Feeling abnormal [Unknown]
